FAERS Safety Report 8569881-4 (Version None)
Quarter: 2012Q3

REPORT INFORMATION
  Report Type: 
  Country: None (occurrence: None)
  Receive Date: 20120803
  Receipt Date: 20120203
  Transmission Date: 20120928
  Serious: No
  Sender: FDA-Public Use
  Company Number: US-ABBOTT-12P-163-0901536-00

PATIENT
  Sex: Male
  Weight: 86.26 kg

DRUGS (7)
  1. VITAMIN B COMPLEX CAP [Concomitant]
     Indication: PRODUCT USED FOR UNKNOWN INDICATION
  2. ASPIRIN [Concomitant]
     Indication: PRODUCT USED FOR UNKNOWN INDICATION
     Dosage: 1/2 HOUR BEFORE DINNER
  3. NIASPAN [Suspect]
     Indication: BLOOD CHOLESTEROL INCREASED
     Dosage: AFTER DINNER
     Dates: start: 20120109
  4. NIASPAN [Suspect]
     Indication: BLOOD TRIGLYCERIDES
  5. MVT [Concomitant]
     Indication: PRODUCT USED FOR UNKNOWN INDICATION
  6. OSTEOBIOFLEX [Concomitant]
     Indication: PRODUCT USED FOR UNKNOWN INDICATION
  7. OMEGA FISH OIL [Concomitant]
     Indication: PRODUCT USED FOR UNKNOWN INDICATION

REACTIONS (1)
  - FLUSHING [None]
